FAERS Safety Report 9943474 (Version 1)
Quarter: 2014Q1

REPORT INFORMATION
  Report Type: Report from Study
  Country: US (occurrence: US)
  Receive Date: 20140303
  Receipt Date: 20140303
  Transmission Date: 20141002
  Serious: No
  Sender: FDA-Public Use
  Company Number: US-ABBVIE-13P-163-1048064-00

PATIENT
  Sex: Female
  Weight: 62.65 kg

DRUGS (7)
  1. HUMIRA [Suspect]
     Indication: RHEUMATOID ARTHRITIS
     Route: 058
     Dates: start: 2007, end: 2008
  2. HUMIRA [Suspect]
     Route: 058
     Dates: start: 2008
  3. CELEBREX [Concomitant]
     Indication: RHEUMATOID ARTHRITIS
  4. METHOTREXATE [Concomitant]
     Indication: RHEUMATOID ARTHRITIS
  5. PREDNISONE [Concomitant]
     Indication: RHEUMATOID ARTHRITIS
  6. RELPAX [Concomitant]
     Indication: MIGRAINE
  7. FOLIC ACID [Concomitant]
     Indication: DRUG THERAPY

REACTIONS (2)
  - Sinusitis [Recovered/Resolved]
  - Drug ineffective [Recovered/Resolved]
